FAERS Safety Report 23887619 (Version 3)
Quarter: 2024Q2

REPORT INFORMATION
  Report Type: Spontaneous
  Country: FR (occurrence: FR)
  Receive Date: 20240523
  Receipt Date: 20240627
  Transmission Date: 20240715
  Serious: No
  Sender: FDA-Public Use
  Company Number: FR-ROCHE-3563848

PATIENT
  Age: 71 Year
  Sex: Male

DRUGS (1)
  1. GLOFITAMAB [Suspect]
     Active Substance: GLOFITAMAB
     Indication: Diffuse large B-cell lymphoma
     Route: 065

REACTIONS (1)
  - General physical health deterioration [Unknown]
